FAERS Safety Report 5208392-0 (Version None)
Quarter: 2006Q4

REPORT INFORMATION
  Report Type: 
  Country: None (occurrence: None)
  Receive Date: 20061026
  Receipt Date: 20060803
  Transmission Date: 20070319
  Serious: No
  Sender: FDA-Public Use
  Company Number: 2006096521

PATIENT
  Age: 90 Year
  Sex: Female

DRUGS (3)
  1. LYRICA [Suspect]
     Indication: POST HERPETIC NEURALGIA
     Dosage: ORAL
     Route: 048
     Dates: start: 20060601
  2. VICODIN [Suspect]
     Indication: PAIN
  3. DARVOCET [Suspect]
     Indication: PAIN
     Dates: start: 20060101, end: 20060101

REACTIONS (6)
  - DRUG INTERACTION [None]
  - LETHARGY [None]
  - MALAISE [None]
  - PAIN [None]
  - RASH [None]
  - SOMNOLENCE [None]
